FAERS Safety Report 10880650 (Version 1)
Quarter: 2015Q1

REPORT INFORMATION
  Report Type: Spontaneous
  Country: US (occurrence: US)
  Receive Date: 20150303
  Receipt Date: 20150303
  Transmission Date: 20150721
  Serious: Yes (Other)
  Sender: FDA-Public Use
  Company Number: US-SUN PHARMACEUTICAL INDUSTRIES LTD-2015SUN00561

PATIENT

DRUGS (12)
  1. CELEBREX [Concomitant]
     Active Substance: CELECOXIB
     Indication: PSORIATIC ARTHROPATHY
     Dosage: 1000 MG, BID
  2. BACTRIM [Suspect]
     Active Substance: SULFAMETHOXAZOLE\TRIMETHOPRIM
     Indication: INFECTION
     Dosage: UNK, GIVEN FOR 10 DAYS
     Route: 065
     Dates: start: 2013, end: 2013
  3. HUMIRA [Concomitant]
     Active Substance: ADALIMUMAB
     Indication: PSORIATIC ARTHROPATHY
     Dosage: 40 MG, UNK
     Dates: start: 2010
  4. FLEXERIL [Concomitant]
     Active Substance: CYCLOBENZAPRINE HYDROCHLORIDE
     Indication: MUSCLE SPASMS
     Dosage: 10 MG, OD
     Route: 048
  5. TOCOPHEROL [Concomitant]
     Active Substance: TOCOPHEROL
     Dosage: 1000 UNITS, OD
  6. BACTRIM [Suspect]
     Active Substance: SULFAMETHOXAZOLE\TRIMETHOPRIM
     Dosage: UNK, GIVEN FOR ANOTHER 10 DAYS
     Route: 065
     Dates: start: 2013
  7. TOCOPHEROL [Concomitant]
     Active Substance: TOCOPHEROL
     Dosage: 400 UNITS, OD
     Route: 065
  8. PREDNISONE. [Concomitant]
     Active Substance: PREDNISONE
     Indication: PAPILLOEDEMA
     Dosage: 5.5 MG, OD
     Route: 048
  9. PEPCID [Concomitant]
     Active Substance: FAMOTIDINE
     Indication: REFLUX GASTRITIS
     Dosage: 40 MG, OD
     Route: 048
  10. ARMOUR [Concomitant]
     Indication: HYPOTHYROIDISM
     Dosage: 2 G, OD
     Route: 048
  11. ALLEGRA [Concomitant]
     Active Substance: FEXOFENADINE HYDROCHLORIDE
     Indication: SEASONAL ALLERGY
     Route: 058
  12. CELEBREX [Concomitant]
     Active Substance: CELECOXIB
     Dosage: 200 MG, BID
     Dates: start: 2014

REACTIONS (3)
  - Drug ineffective [Recovered/Resolved]
  - Staphylococcal infection [Recovered/Resolved]
  - Impaired healing [Recovered/Resolved]

NARRATIVE: CASE EVENT DATE: 201301
